FAERS Safety Report 8902696 (Version 6)
Quarter: 2013Q2

REPORT INFORMATION
  Report Type: Report from Study
  Country: CH (occurrence: CH)
  Receive Date: 20121112
  Receipt Date: 20130416
  Transmission Date: 20140414
  Serious: Yes (Life-Threatening, Hospitalization, Other)
  Sender: FDA-Public Use
  Company Number: CH-GENZYME-CLOF-1002387

PATIENT
  Age: 24 Year
  Sex: Male
  Weight: 78 kg

DRUGS (9)
  1. EVOLTRA [Suspect]
     Indication: ACUTE MYELOID LEUKAEMIA
     Dosage: 20 MG, QD
     Route: 042
     Dates: start: 20121101, end: 20121101
  2. CYTARABINE [Suspect]
     Indication: ACUTE MYELOID LEUKAEMIA
     Dosage: 412 MG (DAY 1-7)
     Route: 042
     Dates: start: 20121101
  3. IDARUBICIN [Suspect]
     Indication: ACUTE MYELOID LEUKAEMIA
     Dosage: 24.7 MG, QD
     Route: 042
     Dates: start: 20121101, end: 20121101
  4. PIPERACILLIN [Concomitant]
     Indication: PYREXIA
     Dosage: 18 G, UNK
     Route: 042
     Dates: start: 20121031, end: 20121104
  5. ALLOPURINOL [Concomitant]
     Indication: LEUKAEMIA
     Dosage: 600 MG, UNK
     Route: 042
     Dates: start: 20121030
  6. TAXOBACTAM [Concomitant]
     Indication: PYREXIA
     Dosage: 18 G, UNK
     Route: 042
     Dates: start: 20121030, end: 20121104
  7. IMIPENETIE [Concomitant]
     Indication: PYREXIA
     Dosage: 3000 MG, UNK
     Route: 042
     Dates: start: 20121104
  8. VANCOMYCIN [Concomitant]
     Indication: PYREXIA
     Dosage: 3 G, UNK
     Route: 042
     Dates: start: 20121103
  9. KYTRIL [Concomitant]
     Indication: PRODUCT USED FOR UNKNOWN INDICATION
     Dosage: UNK
     Route: 042
     Dates: start: 20121101

REACTIONS (5)
  - Atrioventricular block [Recovered/Resolved]
  - Troponin increased [Recovered/Resolved]
  - Blood lactate dehydrogenase increased [Unknown]
  - Thrombocytopenia [Unknown]
  - Anaemia [Unknown]
